FAERS Safety Report 9969984 (Version 1)
Quarter: 2014Q1

REPORT INFORMATION
  Report Type: Spontaneous
  Country: US (occurrence: None)
  Receive Date: 20140131
  Receipt Date: 20140131
  Transmission Date: 20141002
  Serious: Yes (Hospitalization, Other)
  Sender: FDA-Public Use
  Company Number: 092869

PATIENT
  Age: 52 Year
  Sex: Male
  Weight: 81.6 kg

DRUGS (2)
  1. KEPPRA [Suspect]
     Indication: CONVULSION
     Dosage: 2000 MG, DAILY DOSE:  2000 MG
     Dates: start: 20110917, end: 201306
  2. KEPPRA [Suspect]
     Route: 048

REACTIONS (6)
  - Grand mal convulsion [None]
  - Petit mal epilepsy [None]
  - Convulsion [None]
  - Amnesia [None]
  - Depression [None]
  - Anxiety [None]
